FAERS Safety Report 23873956 (Version 2)
Quarter: 2024Q2

REPORT INFORMATION
  Report Type: Spontaneous
  Country: ME (occurrence: ME)
  Receive Date: 20240520
  Receipt Date: 20240531
  Transmission Date: 20240715
  Serious: Yes (Other)
  Sender: FDA-Public Use
  Company Number: ME-009507513-2405MNE005188

PATIENT
  Age: 74 Year
  Sex: Female

DRUGS (9)
  1. KEYTRUDA [Suspect]
     Active Substance: PEMBROLIZUMAB
     Indication: Metastatic renal cell carcinoma
     Dosage: DOSE 4ML, STRENGH 25 MG/ML, DOSING INTERVAL: CYCLICAL
  2. SUTENT [Suspect]
     Active Substance: SUNITINIB MALATE
     Indication: Metastatic renal cell carcinoma
     Dosage: DOSING INTERVAL: CYCLICAL
     Dates: start: 202211, end: 202302
  3. INLYTA [Suspect]
     Active Substance: AXITINIB
     Indication: Metastatic renal cell carcinoma
     Dosage: DOSING INTERVAL: 1 PER 1 DAY, 10 MG DAILY
     Dates: start: 2023, end: 2023
  4. INLYTA [Suspect]
     Active Substance: AXITINIB
     Dosage: DOSING INTERVAL: 1 PER 1 DAY, 6 MG DAILY
  5. INLYTA [Suspect]
     Active Substance: AXITINIB
     Dosage: DOSING INTERVAL: 1 PER 1 DAY, 4 MG DAILY
  6. VOTRIENT [Suspect]
     Active Substance: PAZOPANIB HYDROCHLORIDE
     Indication: Metastatic renal cell carcinoma
     Dosage: DOSING INTERVAL: 1 PER 1 DAY
     Dates: start: 202307, end: 202307
  7. VOTRIENT [Suspect]
     Active Substance: PAZOPANIB HYDROCHLORIDE
     Dosage: DOSING INTERVAL: 1 PER 1 DAY, 600MG DAILY
     Dates: start: 202307, end: 202307
  8. VOTRIENT [Suspect]
     Active Substance: PAZOPANIB HYDROCHLORIDE
     Dosage: DOSING INTERVAL: 1 PER 1 DAY, 400MG DAILY
     Dates: start: 202308, end: 202308
  9. BENSERAZIDE HYDROCHLORIDE\LEVODOPA [Suspect]
     Active Substance: BENSERAZIDE HYDROCHLORIDE\LEVODOPA
     Indication: Parkinsonism
     Dosage: DOSING INTERVAL: 1 PER 1 DAY, 1/4 TABLET OF 250 MG PER DAY

REACTIONS (18)
  - Reduced facial expression [Unknown]
  - Sluggishness [Unknown]
  - Amimia [Unknown]
  - Dysphonia [Unknown]
  - Nausea [Unknown]
  - Diarrhoea [Unknown]
  - Dry skin [Unknown]
  - Skin discolouration [Unknown]
  - Haemoglobin decreased [Unknown]
  - Platelet count decreased [Unknown]
  - Tongue oedema [Recovered/Resolved]
  - Eye disorder [Unknown]
  - Tongue haematoma [Recovered/Resolved]
  - Loss of consciousness [Recovered/Resolved]
  - Restless legs syndrome [Unknown]
  - Dizziness [Unknown]
  - Dyspnoea [Unknown]
  - Discomfort [Unknown]
